FAERS Safety Report 5589332-1 (Version None)
Quarter: 2008Q1

REPORT INFORMATION
  Report Type: 
  Country: None (occurrence: None)
  Receive Date: 20080114
  Receipt Date: 20071213
  Transmission Date: 20080703
  Serious: No
  Sender: FDA-Public Use
  Company Number: US-BAYER-200716271NA

PATIENT
  Age: 60 Year
  Sex: Female
  Weight: 72 kg

DRUGS (3)
  1. AVELOX [Suspect]
     Indication: SINUSITIS
     Dosage: TOTAL DAILY DOSE: 400 MG  UNIT DOSE: 400 MG
     Route: 048
     Dates: start: 20071206
  2. BENICAR [Concomitant]
     Indication: HYPERTENSION
  3. UNKNOWN MEDICINE [Concomitant]
     Indication: NASOPHARYNGITIS

REACTIONS (1)
  - URINARY INCONTINENCE [None]
